FAERS Safety Report 8093115-0 (Version None)
Quarter: 2012Q1

REPORT INFORMATION
  Report Type: 
  Country: None (occurrence: None)
  Receive Date: 20120128
  Receipt Date: 20111003
  Transmission Date: 20120608
  Serious: No
  Sender: FDA-Public Use
  Company Number: US-ABBOTT-11P-163-0850016-00

PATIENT
  Age: 63 Year
  Sex: Female

DRUGS (3)
  1. CLIMARA [Concomitant]
     Indication: PRODUCT USED FOR UNKNOWN INDICATION
     Dosage: HORMONE PATCH
  2. AMLODIPINE [Concomitant]
     Indication: HYPERTENSION
     Dosage: 5/20 DAILY
  3. HUMIRA [Suspect]
     Indication: PSORIASIS
     Dates: start: 20110523

REACTIONS (1)
  - HEPATIC ENZYME INCREASED [None]
